FAERS Safety Report 13942339 (Version 1)
Quarter: 2017Q3

REPORT INFORMATION
  Report Type: Spontaneous
  Country: US (occurrence: US)
  Receive Date: 20170907
  Receipt Date: 20170907
  Transmission Date: 20171127
  Serious: Yes (Other)
  Sender: FDA-Public Use
  Company Number: None

PATIENT
  Age: 39 Year
  Sex: Female
  Weight: 77.85 kg

DRUGS (22)
  1. METFORMIN [Concomitant]
     Active Substance: METFORMIN HYDROCHLORIDE
  2. IBUPROFEN. [Concomitant]
     Active Substance: IBUPROFEN
  3. MORPHINE SULFATE. [Concomitant]
     Active Substance: MORPHINE SULFATE
  4. LORAZEPAM. [Concomitant]
     Active Substance: LORAZEPAM
  5. RITALIN [Concomitant]
     Active Substance: METHYLPHENIDATE HYDROCHLORIDE
  6. OMEGA 3, 6, 9 FISH OIL [Concomitant]
  7. LIDOCAINE. [Concomitant]
     Active Substance: LIDOCAINE
  8. CORTISONE INJECTIONS [Concomitant]
  9. NERVE LESIONING PROCEDURES [Concomitant]
  10. BUSPIRONE HCL 5MG [Suspect]
     Active Substance: BUSPIRONE HYDROCHLORIDE
     Indication: ANXIETY
     Dosage: ?          QUANTITY:60 TABLET(S);?
     Route: 048
     Dates: start: 20161107, end: 20170907
  11. OMPRAZOLE [Concomitant]
     Active Substance: OMEPRAZOLE
  12. TRAZODONE [Concomitant]
     Active Substance: TRAZODONE HYDROCHLORIDE
  13. PROMETHAZINE TABLET [Concomitant]
  14. TENS UNIT [Concomitant]
  15. PROMETHAZINE SUPPOSITORY [Concomitant]
  16. ZOFRAN [Concomitant]
     Active Substance: ONDANSETRON HYDROCHLORIDE
  17. MULTI VITAMIN [Concomitant]
     Active Substance: VITAMINS
  18. VITAMIN C [Concomitant]
     Active Substance: ASCORBIC ACID
  19. DICLOFENAC TOPICAL GEL [Concomitant]
  20. VITAMIN E [Concomitant]
     Active Substance: .ALPHA.-TOCOPHEROL
  21. VITAMIN D [Concomitant]
     Active Substance: CHOLECALCIFEROL
  22. EXCEDRINE [Concomitant]

REACTIONS (2)
  - Alopecia [None]
  - Madarosis [None]

NARRATIVE: CASE EVENT DATE: 20170201
